FAERS Safety Report 4329818-0 (Version None)
Quarter: 2004Q1

REPORT INFORMATION
  Report Type: 
  Country: None (occurrence: None)
  Receive Date: 20040329
  Receipt Date: 20040312
  Transmission Date: 20041129
  Serious: Yes (Other)
  Sender: FDA-Public Use
  Company Number: 2004019523

PATIENT
  Sex: 0

DRUGS (4)
  1. PHENYTOIN SODIUM [Suspect]
     Indication: ILL-DEFINED DISORDER
  2. QUININE (QUININE) [Concomitant]
  3. VALPROATE SODIUM [Concomitant]
  4. TOPIRAMATE [Concomitant]

REACTIONS (2)
  - DRUG LEVEL DECREASED [None]
  - MALARIA [None]
